FAERS Safety Report 10645656 (Version 2)
Quarter: 2015Q1

REPORT INFORMATION
  Report Type: Report from Study
  Country: FR (occurrence: FR)
  Receive Date: 20141211
  Receipt Date: 20150219
  Transmission Date: 20150720
  Serious: Yes (Life-Threatening)
  Sender: FDA-Public Use
  Company Number: FR-CELGENE-FRA-2014121341

PATIENT
  Age: 41 Year
  Sex: Male

DRUGS (5)
  1. DEXAMETHASONE. [Suspect]
     Active Substance: DEXAMETHASONE
     Indication: PLASMA CELL MYELOMA
     Route: 065
     Dates: start: 20140624, end: 20141008
  2. REVLIMID [Suspect]
     Active Substance: LENALIDOMIDE
     Route: 048
     Dates: end: 20141006
  3. ENDOXAN [Concomitant]
     Active Substance: CYCLOPHOSPHAMIDE
     Indication: HAEMATOPOIETIC STEM CELL MOBILISATION
     Route: 065
     Dates: start: 20141117, end: 20141118
  4. CARFILZOMIB [Suspect]
     Active Substance: CARFILZOMIB
     Indication: PLASMA CELL MYELOMA
     Route: 065
     Dates: start: 20140624, end: 20141001
  5. REVLIMID [Suspect]
     Active Substance: LENALIDOMIDE
     Indication: PLASMA CELL MYELOMA
     Route: 048
     Dates: start: 20140624

REACTIONS (1)
  - Intracardiac thrombus [Recovered/Resolved]

NARRATIVE: CASE EVENT DATE: 20141124
